FAERS Safety Report 5452915-3 (Version None)
Quarter: 2007Q3

REPORT INFORMATION
  Report Type: 
  Country: None (occurrence: None)
  Receive Date: 20070914
  Receipt Date: 20070904
  Transmission Date: 20080115
  Serious: Yes (Hospitalization, Other)
  Sender: FDA-Public Use
  Company Number: B0486913A

PATIENT
  Age: 68 Year
  Sex: Female

DRUGS (9)
  1. AUGMENTIN '125' [Suspect]
     Route: 048
     Dates: start: 20070520, end: 20070521
  2. CLAFORAN [Suspect]
     Route: 042
     Dates: start: 20070521, end: 20070523
  3. PREVISCAN [Concomitant]
     Route: 065
  4. AMLOR [Concomitant]
     Route: 065
  5. HYZAAR [Concomitant]
     Route: 065
  6. MEPRONIZINE [Concomitant]
     Route: 065
  7. LESCOL [Concomitant]
     Route: 065
  8. LORAZEPAM [Concomitant]
     Route: 065
  9. OROKEN [Concomitant]
     Route: 065
     Dates: start: 20070524, end: 20070530

REACTIONS (4)
  - BLOOD CULTURE POSITIVE [None]
  - CLOSTRIDIAL INFECTION [None]
  - DIARRHOEA [None]
  - URINARY TRACT INFECTION [None]
